FAERS Safety Report 5167992-7 (Version None)
Quarter: 2006Q4

REPORT INFORMATION
  Report Type: 
  Country: None (occurrence: None)
  Receive Date: 20061208
  Receipt Date: 20060109
  Transmission Date: 20070319
  Serious: No
  Sender: FDA-Public Use
  Company Number: US-GLAXOSMITHKLINE-A0588346A

PATIENT
  Age: 58 Year
  Sex: Male

DRUGS (9)
  1. AVANDAMET [Suspect]
     Dosage: 2TAB TWICE PER DAY
     Route: 048
  2. GLYBURIDE [Concomitant]
  3. COREG [Concomitant]
  4. VYTORIN [Concomitant]
  5. PLAVIX [Concomitant]
  6. PROCARDIA [Concomitant]
  7. ASPIRIN [Concomitant]
  8. ALLEGRA-D 12 HOUR [Concomitant]
  9. OXYCONTIN [Concomitant]

REACTIONS (3)
  - FOREIGN BODY IN EYE [None]
  - HEADACHE [None]
  - VISION BLURRED [None]
